FAERS Safety Report 11552205 (Version 2)
Quarter: 2016Q1

REPORT INFORMATION
  Report Type: Report from Study
  Country: US (occurrence: US)
  Receive Date: 20150925
  Receipt Date: 20160125
  Transmission Date: 20160525
  Serious: No
  Sender: FDA-Public Use
  Company Number: US-AMGEN-USASL2015097463

PATIENT
  Age: 47 Year
  Sex: Female

DRUGS (2)
  1. ENBREL [Suspect]
     Active Substance: ETANERCEPT
     Indication: RHEUMATOID ARTHRITIS
     Dosage: 50 MG, QWK
     Route: 065
     Dates: start: 20150708
  2. METHOTREXATE [Concomitant]
     Active Substance: METHOTREXATE
     Dosage: UNK

REACTIONS (7)
  - Injection site pain [Recovered/Resolved]
  - Injection site warmth [Recovered/Resolved]
  - Injection site reaction [Unknown]
  - Injection site erythema [Recovered/Resolved]
  - Injection site discomfort [Unknown]
  - Injection site pruritus [Recovered/Resolved]
  - Injection site rash [Unknown]

NARRATIVE: CASE EVENT DATE: 2015
